FAERS Safety Report 5776708-2 (Version None)
Quarter: 2008Q2

REPORT INFORMATION
  Report Type: 
  Country: None (occurrence: None)
  Receive Date: 20080616
  Receipt Date: 20080529
  Transmission Date: 20081010
  Serious: Yes (Hospitalization)
  Sender: FDA-Public Use
  Company Number: 2008SP011208

PATIENT
  Age: 77 Year
  Sex: Male

DRUGS (5)
  1. INTEGRILIN [Suspect]
     Indication: ARTERIOGRAM CORONARY
     Dosage: IV
     Route: 042
     Dates: start: 20080509, end: 20080511
  2. CLOPIDOGREL BISULFATE [Suspect]
     Indication: ARTERIOGRAM CORONARY
     Dosage: 75 MG;QD;PO
     Route: 048
     Dates: start: 20080509, end: 20080513
  3. LYSINE ASPIRIN (ACETYLSALICYLATE LYSINE) [Suspect]
     Indication: ARTERIOGRAM CORONARY
     Dosage: 75 MG;QD;PO
     Route: 048
     Dates: start: 20080509, end: 20080513
  4. HEPARIN [Suspect]
     Indication: ARTERIOGRAM CORONARY
     Dosage: 26000 IU; IV, 36000 IU; IV
     Route: 042
     Dates: start: 20080509, end: 20080514
  5. HEPARIN [Suspect]
     Indication: ARTERIOGRAM CORONARY
     Dosage: 26000 IU; IV, 36000 IU; IV
     Route: 042
     Dates: start: 20080515, end: 20080516

REACTIONS (3)
  - ANAEMIA [None]
  - DRUG INTERACTION [None]
  - SMALL INTESTINAL HAEMORRHAGE [None]
